FAERS Safety Report 24716502 (Version 1)
Quarter: 2024Q4

REPORT INFORMATION
  Report Type: Spontaneous
  Country: US (occurrence: None)
  Receive Date: 20241209
  Receipt Date: 20241209
  Transmission Date: 20250115
  Serious: No
  Sender: Public
  Company Number: None

PATIENT
  Age: 26 Year
  Sex: Female
  Weight: 106.59 kg

DRUGS (1)
  1. HUMIRA [Suspect]
     Active Substance: ADALIMUMAB
     Indication: Hidradenitis
     Dosage: INJECT 160MG (4 SYRINGES) SUBCUTANEOUSLY ON DAY 1,  80MG (2  SYRINGES) ON DAY 15, THEN 40MG ...
     Route: 058
     Dates: start: 202408

REACTIONS (1)
  - Respiratory tract infection [None]
